FAERS Safety Report 13938049 (Version 3)
Quarter: 2017Q3

REPORT INFORMATION
  Report Type: Report from Study
  Country: None (occurrence: PA)
  Receive Date: 20170905
  Receipt Date: 20170925
  Transmission Date: 20171127
  Serious: Yes (Hospitalization, Other)
  Sender: FDA-Public Use
  Company Number: PA-ABBVIE-17P-125-2089122-00

PATIENT
  Sex: Male

DRUGS (3)
  1. PARICALCITOL. [Suspect]
     Active Substance: PARICALCITOL
     Indication: PRODUCT USED FOR UNKNOWN INDICATION
     Route: 065
  2. ZEMPLAR [Suspect]
     Active Substance: PARICALCITOL
     Indication: HYPERPARATHYROIDISM SECONDARY
     Route: 042
     Dates: start: 20161026, end: 20170607
  3. ZEMPLAR [Suspect]
     Active Substance: PARICALCITOL
     Route: 065

REACTIONS (8)
  - Device occlusion [Not Recovered/Not Resolved]
  - Leg amputation [Not Recovered/Not Resolved]
  - Hypotension [Recovered/Resolved]
  - Post procedural complication [Not Recovered/Not Resolved]
  - Syncope [Recovered/Resolved]
  - Impaired healing [Not Recovered/Not Resolved]
  - Anxiety [Not Recovered/Not Resolved]
  - Post procedural discharge [Not Recovered/Not Resolved]
